FAERS Safety Report 21801123 (Version 9)
Quarter: 2024Q1

REPORT INFORMATION
  Report Type: Spontaneous
  Country: DE (occurrence: DE)
  Receive Date: 20221230
  Receipt Date: 20240306
  Transmission Date: 20240410
  Serious: Yes (Life-Threatening, Hospitalization, Other)
  Sender: FDA-Public Use
  Company Number: DE-BRISTOL-MYERS SQUIBB COMPANY-2022-158407

PATIENT
  Age: 86 Year
  Sex: Male
  Weight: 90 kg

DRUGS (19)
  1. OXALIPLATIN [Suspect]
     Active Substance: OXALIPLATIN
     Indication: Oesophageal adenocarcinoma
     Dosage: 129 MG, Q2W (2 WEEKLY; ONCE PER CYCLE)
     Route: 042
     Dates: start: 20221107
  2. OXALIPLATIN [Suspect]
     Active Substance: OXALIPLATIN
     Dosage: 129 MG, Q3W (2 WEEKLY; ONCE PER CYCLE)
     Route: 042
     Dates: start: 20221107
  3. OXALIPLATIN [Suspect]
     Active Substance: OXALIPLATIN
     Dosage: 129 MG, Q3W (3 WEEKLY)
     Route: 042
     Dates: start: 20221109
  4. OXALIPLATIN [Suspect]
     Active Substance: OXALIPLATIN
     Dosage: 129 MG, Q3W (3 WEEKLY)
     Route: 042
     Dates: start: 20221209
  5. FLUOROURACIL [Suspect]
     Active Substance: FLUOROURACIL
     Indication: Oesophageal adenocarcinoma
     Dosage: 3939 MG, Q2W (ONCE IN A CYCLE)
     Route: 042
     Dates: start: 20221107
  6. FLUOROURACIL [Suspect]
     Active Substance: FLUOROURACIL
     Dosage: 3939 MG, Q3W (ONCE IN A CYCLE)
     Route: 042
     Dates: start: 20221107
  7. FLUOROURACIL [Suspect]
     Active Substance: FLUOROURACIL
     Dosage: UNK, Q3W (3 WEEKLY)
     Route: 042
     Dates: start: 20221209
  8. OPDIVO [Suspect]
     Active Substance: NIVOLUMAB
     Indication: Oesophageal adenocarcinoma
     Dosage: 240 MG, BIW
     Route: 042
     Dates: start: 20221107, end: 20221209
  9. OPDIVO [Suspect]
     Active Substance: NIVOLUMAB
     Dosage: 240 MG, Q3W
     Route: 042
     Dates: start: 20221209, end: 20221210
  10. OPDIVO [Suspect]
     Active Substance: NIVOLUMAB
     Dosage: 240 MG, BIW
     Route: 042
     Dates: end: 20221227
  11. OPDIVO [Suspect]
     Active Substance: NIVOLUMAB
     Dosage: 480 MG, QW
     Route: 042
     Dates: end: 20221227
  12. HYDROCHLOROTHIAZIDE\VALSARTAN [Concomitant]
     Active Substance: HYDROCHLOROTHIAZIDE\VALSARTAN
     Indication: Prophylaxis
     Dosage: 160 MG,QD
     Route: 048
     Dates: start: 20221014
  13. NEBIVOLOL [Concomitant]
     Active Substance: NEBIVOLOL
     Indication: Product used for unknown indication
     Dosage: 5 MG, QD
     Route: 048
     Dates: start: 20221014
  14. PANTOPRAZOLE [Concomitant]
     Active Substance: PANTOPRAZOLE
     Indication: Prophylaxis
     Dosage: 40 MG,QD
     Route: 048
     Dates: start: 20221014
  15. XARELTO [Concomitant]
     Active Substance: RIVAROXABAN
     Indication: Prophylaxis
     Dosage: 20 MG,QD
     Route: 048
     Dates: start: 20221014
  16. SIMVASTATIN [Concomitant]
     Active Substance: SIMVASTATIN
     Indication: Prophylaxis
     Dosage: 20 MG, QD
     Route: 048
     Dates: start: 20221013
  17. SIMVASTATIN [Concomitant]
     Active Substance: SIMVASTATIN
     Dosage: 20 MG,QD
     Route: 048
     Dates: start: 20221014
  18. SPIRONOLACTONE [Concomitant]
     Active Substance: SPIRONOLACTONE
     Indication: Product used for unknown indication
     Dosage: 160 MG, QD
     Route: 048
     Dates: start: 20221227
  19. TORSEMIDE [Concomitant]
     Active Substance: TORSEMIDE
     Indication: Product used for unknown indication
     Dosage: 10 MG, Q12H (0.5 DAY)
     Route: 048
     Dates: start: 20221223

REACTIONS (10)
  - Dyspnoea [Recovered/Resolved with Sequelae]
  - Skin lesion [Not Recovered/Not Resolved]
  - Dysphagia [Not Recovered/Not Resolved]
  - Pneumonia [Unknown]
  - Cardiac failure [Unknown]
  - C-reactive protein decreased [Recovered/Resolved]
  - Blood uric acid increased [Recovered/Resolved]
  - General physical health deterioration [Unknown]
  - Oedema peripheral [Not Recovered/Not Resolved]
  - Off label use [Unknown]

NARRATIVE: CASE EVENT DATE: 20221101
